FAERS Safety Report 7446595-5 (Version None)
Quarter: 2011Q2

REPORT INFORMATION
  Report Type: 
  Country: None (occurrence: None)
  Receive Date: 20110429
  Receipt Date: 20110418
  Transmission Date: 20111010
  Serious: Yes (Hospitalization)
  Sender: FDA-Public Use
  Company Number: US-JNJFOC-20110408049

PATIENT
  Age: 23 Year
  Sex: Male
  Weight: 69.3 kg

DRUGS (4)
  1. PARACETAMOL [Suspect]
     Indication: PRODUCT USED FOR UNKNOWN INDICATION
  2. DIPHENHYDRAMINE [Suspect]
     Indication: PRODUCT USED FOR UNKNOWN INDICATION
  3. PARACETAMOL [Suspect]
  4. METHAMPHETAMINE [Suspect]
     Indication: PRODUCT USED FOR UNKNOWN INDICATION

REACTIONS (5)
  - LETHARGY [None]
  - MULTIPLE DRUG OVERDOSE INTENTIONAL [None]
  - UNRESPONSIVE TO STIMULI [None]
  - DYSARTHRIA [None]
  - TACHYCARDIA [None]
